FAERS Safety Report 21706964 (Version 1)
Quarter: 2022Q4

REPORT INFORMATION
  Report Type: Spontaneous
  Country: CH (occurrence: None)
  Receive Date: 20221209
  Receipt Date: 20221209
  Transmission Date: 20230113
  Serious: Yes (Hospitalization, Other)
  Sender: FDA-Public Use
  Company Number: 2022A401055

PATIENT
  Age: 60 Year
  Sex: Female

DRUGS (7)
  1. ZOMIG [Suspect]
     Active Substance: ZOLMITRIPTAN
     Indication: Cluster headache
     Dosage: 5 MILLIGRAM, 1/DAY
     Route: 045
     Dates: end: 202203
  2. ERENUMAB [Suspect]
     Active Substance: ERENUMAB
     Indication: Cluster headache
     Dosage: 140 MILLIGRAM, 1/MONTH
     Route: 065
     Dates: start: 2020, end: 20221114
  3. OXYGEN [Concomitant]
     Active Substance: OXYGEN
     Indication: Cluster headache
     Dosage: 12 LITRE
     Route: 065
  4. GABAPENTIN [Concomitant]
     Active Substance: GABAPENTIN
     Indication: Product used for unknown indication
     Dosage: 200 MILLIGRAM, 1/DAY
     Route: 065
  5. CALCIUM [Concomitant]
     Active Substance: CALCIUM
     Indication: Product used for unknown indication
     Dosage: 1 DOSAGE FORM, 1/DAY
     Route: 065
  6. DAFALGAN [Concomitant]
     Active Substance: ACETAMINOPHEN
     Indication: Product used for unknown indication
     Dosage: UNK UNK, AS NEEDED INTERMITTENT
     Route: 065
  7. ZOLPIDEM TARTRATE [Concomitant]
     Active Substance: ZOLPIDEM TARTRATE
     Indication: Product used for unknown indication
     Dosage: UNK UNK, AS NEEDED INTERMITTENT
     Route: 065

REACTIONS (2)
  - Coronary artery dissection [Not Recovered/Not Resolved]
  - Acute myocardial infarction [Not Recovered/Not Resolved]

NARRATIVE: CASE EVENT DATE: 20221116
